FAERS Safety Report 10754368 (Version 3)
Quarter: 2015Q1

REPORT INFORMATION
  Report Type: Spontaneous
  Country: FR (occurrence: FR)
  Receive Date: 20150202
  Receipt Date: 20150305
  Transmission Date: 20150721
  Serious: Yes (Other)
  Sender: FDA-Public Use
  Company Number: FR-JNJFOC-20150113439

PATIENT
  Age: 35 Year
  Sex: Male
  Weight: 74 kg

DRUGS (5)
  1. VALIUM [Concomitant]
     Active Substance: DIAZEPAM
     Indication: ANXIETY
     Route: 048
     Dates: start: 20141225, end: 20150202
  2. NOZINAN [Concomitant]
     Active Substance: LEVOMEPROMAZINE
     Indication: AGITATION
     Route: 048
     Dates: start: 20141225, end: 20150202
  3. RISPERDAL [Concomitant]
     Active Substance: RISPERIDONE
     Indication: PSYCHOTIC DISORDER
     Route: 048
     Dates: start: 20141225, end: 20150202
  4. THERALENE [Concomitant]
     Active Substance: TRIMEPRAZINE
     Indication: INSOMNIA
     Route: 048
     Dates: start: 20141225, end: 20150202
  5. RISPERDAL CONSTA [Suspect]
     Active Substance: RISPERIDONE
     Indication: SCHIZOPHRENIA
     Route: 030
     Dates: start: 20150119

REACTIONS (1)
  - Respiratory distress [Recovered/Resolved]

NARRATIVE: CASE EVENT DATE: 20150119
